FAERS Safety Report 6510086-6 (Version None)
Quarter: 2009Q4

REPORT INFORMATION
  Report Type: 
  Country: None (occurrence: None)
  Receive Date: 20091217
  Receipt Date: 20091215
  Transmission Date: 20100525
  Serious: Yes (Death)
  Sender: FDA-Public Use
  Company Number: FABR-1001091

PATIENT
  Age: 47 Year
  Sex: Male
  Weight: 61.5 kg

DRUGS (2)
  1. FABRAZYME [Suspect]
     Indication: FABRY'S DISEASE
     Dosage: 35 MG, Q2W, INTRAVENOUS; INTRAVENOUS
     Route: 042
     Dates: start: 20061001, end: 20091001
  2. FABRAZYME [Suspect]
     Indication: FABRY'S DISEASE
     Dosage: 35 MG, Q2W, INTRAVENOUS; INTRAVENOUS
     Route: 042
     Dates: start: 20091028, end: 20091028

REACTIONS (1)
  - CEREBROVASCULAR ACCIDENT [None]
